FAERS Safety Report 7059645-5 (Version None)
Quarter: 2010Q4

REPORT INFORMATION
  Report Type: 
  Country: None (occurrence: None)
  Receive Date: 20101025
  Receipt Date: 20101012
  Transmission Date: 20110411
  Serious: Yes (Hospitalization)
  Sender: FDA-Public Use
  Company Number: US-ELI_LILLY_AND_COMPANY-US201010003043

PATIENT
  Age: 53 Year
  Sex: Female

DRUGS (2)
  1. CYMBALTA [Suspect]
     Indication: DEPRESSION
     Dosage: UNK, UNKNOWN
  2. CYMBALTA [Suspect]
     Dosage: 30 MG, UNK
     Dates: end: 20101011

REACTIONS (4)
  - DRUG WITHDRAWAL SYNDROME [None]
  - DYSPHORIA [None]
  - HEADACHE [None]
  - HIATUS HERNIA [None]
